FAERS Safety Report 10457658 (Version 1)
Quarter: 2014Q3

REPORT INFORMATION
  Report Type: Spontaneous
  Country: MX (occurrence: MX)
  Receive Date: 20140916
  Receipt Date: 20140916
  Transmission Date: 20150326
  Serious: Yes (Hospitalization, Other)
  Sender: FDA-Public Use
  Company Number: MX-PFIZER INC-2014253836

PATIENT
  Age: 65 Year
  Sex: Male

DRUGS (1)
  1. EPAMIN [Suspect]
     Active Substance: PHENYTOIN SODIUM

REACTIONS (3)
  - Withdrawal syndrome [Unknown]
  - Feeling abnormal [Unknown]
  - Aphasia [Unknown]
